FAERS Safety Report 19932430 (Version 1)
Quarter: 2021Q4

REPORT INFORMATION
  Report Type: Spontaneous
  Country: US (occurrence: US)
  Receive Date: 20211007
  Receipt Date: 20211007
  Transmission Date: 20220303
  Serious: No
  Sender: FDA-Public Use
  Company Number: None

PATIENT
  Age: 18 Year
  Sex: Male
  Weight: 86 kg

DRUGS (4)
  1. PRIVIGEN [Suspect]
     Active Substance: HUMAN IMMUNOGLOBULIN G
     Indication: Myasthenia gravis
     Dosage: ?          OTHER FREQUENCY:EVERY 4 WEEKS;
     Route: 041
     Dates: start: 20210211
  2. diphenhydramine 25 mg po [Concomitant]
  3. acetaminophen 650 mg po [Concomitant]
  4. mestinon 90 mg po [Concomitant]

REACTIONS (3)
  - Rash pruritic [None]
  - Urticaria [None]
  - Infusion related reaction [None]

NARRATIVE: CASE EVENT DATE: 20211001
